FAERS Safety Report 8084640-7 (Version None)
Quarter: 2012Q1

REPORT INFORMATION
  Report Type: 
  Country: None (occurrence: None)
  Receive Date: 20120128
  Receipt Date: 20110329
  Transmission Date: 20120608
  Serious: No
  Sender: FDA-Public Use
  Company Number: US-ABBOTT-11P-163-0715406-00

PATIENT
  Sex: Female

DRUGS (1)
  1. HUMIRA [Suspect]
     Indication: PSORIASIS
     Dosage: HAD LOADING DOSE ONLY 80MG
     Route: 058
     Dates: start: 20110316

REACTIONS (2)
  - ALOPECIA [None]
  - FATIGUE [None]
